FAERS Safety Report 9204062 (Version 1)
Quarter: 2013Q1

REPORT INFORMATION
  Report Type: Spontaneous
  Country: US (occurrence: None)
  Receive Date: 20120709
  Receipt Date: 20120709
  Transmission Date: 20140127
  Serious: Yes (Other)
  Sender: FDA-Public Use
  Company Number: PHEH2011US02410

PATIENT
  Age: 75 Year
  Sex: Female
  Weight: 86 kg

DRUGS (1)
  1. GLEEVEC [Suspect]
     Indication: GASTROINTESTINAL STROMAL TUMOUR
     Route: 048
     Dates: start: 20110721, end: 20111006

REACTIONS (8)
  - Oedema [None]
  - Oedema peripheral [None]
  - Urine odour abnormal [None]
  - Dysgeusia [None]
  - Paraesthesia [None]
  - Eye swelling [None]
  - Decreased appetite [None]
  - Swelling face [None]
